FAERS Safety Report 11813580 (Version 6)
Quarter: 2016Q2

REPORT INFORMATION
  Report Type: Report from Study
  Country: BR (occurrence: BR)
  Receive Date: 20151209
  Receipt Date: 20160504
  Transmission Date: 20160815
  Serious: Yes (Hospitalization, Other)
  Sender: FDA-Public Use
  Company Number: PHHY2015BR161055

PATIENT
  Age: 8 Year
  Sex: Male
  Weight: 28 kg

DRUGS (4)
  1. HYDREA [Concomitant]
     Active Substance: HYDROXYUREA
     Indication: HYPERSENSITIVITY
  2. HYDREA [Concomitant]
     Active Substance: HYDROXYUREA
     Indication: SICKLE CELL ANAEMIA
     Dosage: 1 DF, QD SINCE 3 YEARS AGO
     Route: 048
  3. ACIDO FOLICO//FOLIC ACID [Concomitant]
     Active Substance: FOLIC ACID
     Indication: ANAEMIA
     Dosage: 2 DF, QOD (MONDAY, WEDNESDAY AND FRIDAY)
     Route: 048
  4. EXJADE [Suspect]
     Active Substance: DEFERASIROX
     Indication: SICKLE CELL ANAEMIA
     Dosage: 1 DF (20 MG/KG), QD
     Route: 048
     Dates: start: 2013

REACTIONS (20)
  - Nasopharyngitis [Unknown]
  - Serum ferritin increased [Unknown]
  - Wound infection [Recovered/Resolved]
  - Drug ineffective [Unknown]
  - Abdominal pain [Recovered/Resolved]
  - Hepatic siderosis [Not Recovered/Not Resolved]
  - Nasal obstruction [Recovering/Resolving]
  - Hypersensitivity [Recovered/Resolved]
  - Haematocrit decreased [Recovered/Resolved]
  - Gait disturbance [Recovered/Resolved]
  - Rash pustular [Recovered/Resolved]
  - Ocular icterus [Recovered/Resolved]
  - Lip discolouration [Recovered/Resolved]
  - Pruritus [Recovered/Resolved]
  - Allergy to arthropod bite [Unknown]
  - Wound haemorrhage [Unknown]
  - Asthenia [Recovered/Resolved]
  - Rhinitis [Unknown]
  - Arthropod bite [Recovering/Resolving]
  - Pain in extremity [Recovered/Resolved]

NARRATIVE: CASE EVENT DATE: 201505
